FAERS Safety Report 5064607-3 (Version None)
Quarter: 2006Q3

REPORT INFORMATION
  Report Type: 
  Country: None (occurrence: None)
  Receive Date: 20060725
  Receipt Date: 20060714
  Transmission Date: 20061208
  Serious: Yes (Hospitalization)
  Sender: FDA-Public Use
  Company Number: 2006BI008215

PATIENT
  Age: 57 Year
  Sex: Female

DRUGS (3)
  1. ZEVALIN [Suspect]
     Indication: LYMPHOMA
     Dosage: 4.8 MCI; 1X; IV
     Route: 042
     Dates: start: 20060523, end: 20060523
  2. RITUXIMAB [Concomitant]
  3. ANTI-HYPERTENSION MEDICATION [Concomitant]

REACTIONS (3)
  - ABDOMINAL PAIN [None]
  - ADHESION [None]
  - SMALL INTESTINAL OBSTRUCTION [None]
